FAERS Safety Report 11239813 (Version 1)
Quarter: 2015Q3

REPORT INFORMATION
  Report Type: Report from Study
  Country: AU (occurrence: AU)
  Receive Date: 20150706
  Receipt Date: 20150706
  Transmission Date: 20151125
  Serious: Yes (Hospitalization, Other)
  Sender: FDA-Public Use
  Company Number: AU-ABBVIE-15K-008-1416948-00

PATIENT
  Sex: Male

DRUGS (2)
  1. HUMIRA [Suspect]
     Active Substance: ADALIMUMAB
     Indication: CROHN^S DISEASE
     Route: 065
     Dates: start: 2009, end: 201506
  2. HUMIRA [Suspect]
     Active Substance: ADALIMUMAB
     Indication: RHEUMATOID ARTHRITIS
     Route: 065
     Dates: start: 2015

REACTIONS (5)
  - Cyst [Unknown]
  - Postoperative wound infection [Unknown]
  - Injection site pain [Not Recovered/Not Resolved]
  - Surgery [Recovering/Resolving]
  - Postoperative wound complication [Unknown]

NARRATIVE: CASE EVENT DATE: 201506
